FAERS Safety Report 18427650 (Version 4)
Quarter: 2020Q4

REPORT INFORMATION
  Report Type: Spontaneous
  Country: ES (occurrence: ES)
  Receive Date: 20201026
  Receipt Date: 20201215
  Transmission Date: 20210114
  Serious: Yes (Hospitalization, Other)
  Sender: FDA-Public Use
  Company Number: ES-MYLANLABS-2020M1089316

PATIENT
  Age: 83 Year
  Sex: Female

DRUGS (9)
  1. ACENOCOUMAROL [Suspect]
     Active Substance: ACENOCOUMAROL
     Indication: ATRIAL FIBRILLATION
     Dosage: UNK
     Route: 065
  2. LOPINAVIR/RITONAVIR [Suspect]
     Active Substance: LOPINAVIR\RITONAVIR
     Indication: COVID-19
  3. LOPINAVIR/RITONAVIR [Suspect]
     Active Substance: LOPINAVIR\RITONAVIR
     Indication: COVID-19 PNEUMONIA
     Dosage: UNK
  4. HYDROXYCHLOROQUINE [Suspect]
     Active Substance: HYDROXYCHLOROQUINE
     Indication: COVID-19
  5. ENOXAPARIN [Suspect]
     Active Substance: ENOXAPARIN
     Dosage: 120 MILLIGRAM, QD(60 MG, BID)
     Route: 065
  6. AZITHROMYCIN ANHYDROUS. [Concomitant]
     Active Substance: AZITHROMYCIN ANHYDROUS
     Indication: PRODUCT USE IN UNAPPROVED INDICATION
     Dosage: UNK
     Route: 065
  7. ENOXAPARIN [Suspect]
     Active Substance: ENOXAPARIN
     Indication: ATRIAL FIBRILLATION
     Dosage: 80 MILLIGRAM, BID
  8. HYDROXYCHLOROQUINE [Suspect]
     Active Substance: HYDROXYCHLOROQUINE
     Indication: COVID-19 PNEUMONIA
     Dosage: UNK
     Route: 065
  9. RIVAROXABAN [Concomitant]
     Active Substance: RIVAROXABAN
     Indication: ATRIAL FIBRILLATION
     Dosage: UNK

REACTIONS (22)
  - Abdominal wall haemorrhage [Unknown]
  - Blood sodium decreased [Unknown]
  - Low density lipoprotein increased [Unknown]
  - Haemorrhage [Unknown]
  - Fibrin D dimer increased [Unknown]
  - Arterial haemorrhage [Unknown]
  - Pelvic haematoma [Unknown]
  - Product use issue [Unknown]
  - Poor peripheral circulation [Unknown]
  - Fall [Unknown]
  - Hypotension [Unknown]
  - Dizziness [Unknown]
  - Cough [Unknown]
  - Off label use [Unknown]
  - C-reactive protein increased [Unknown]
  - Dysarthria [Recovered/Resolved]
  - Nervous system disorder [Recovered/Resolved]
  - Blood creatine phosphokinase increased [Unknown]
  - Intra-abdominal haematoma [Unknown]
  - Haemoglobin decreased [Unknown]
  - Intentional product misuse [Unknown]
  - Blood glucose increased [Unknown]
